FAERS Safety Report 8268626-5 (Version None)
Quarter: 2012Q2

REPORT INFORMATION
  Report Type: 
  Country: None (occurrence: None)
  Receive Date: 20120409
  Receipt Date: 20120404
  Transmission Date: 20120825
  Serious: Yes (Death, Other)
  Sender: FDA-Public Use
  Company Number: IT-ASTRAZENECA-2012SE15595

PATIENT
  Age: 32473 Day
  Sex: Female

DRUGS (5)
  1. ASPIRIN [Concomitant]
     Route: 048
  2. ZYPREXA [Concomitant]
  3. PANTOPRAZOLE SODIUM [Concomitant]
  4. MERREM [Suspect]
     Indication: PNEUMONITIS
     Route: 042
     Dates: start: 20120214, end: 20120221
  5. DEPONIT [Concomitant]
     Route: 062

REACTIONS (2)
  - SEPSIS [None]
  - RENAL FAILURE ACUTE [None]
